FAERS Safety Report 6816519-X (Version None)
Quarter: 2010Q3

REPORT INFORMATION
  Report Type: 
  Country: None (occurrence: None)
  Receive Date: 20100706
  Receipt Date: 20100621
  Transmission Date: 20110219
  Serious: No
  Sender: FDA-Public Use
  Company Number: US-B.I. PHARMACEUTICALS,INC./RIDGEFIELD-2010-BP-06974BP

PATIENT
  Sex: Female

DRUGS (1)
  1. MICARDIS HCT [Suspect]
     Indication: HYPERTENSION
     Dosage: 40MG/12.5MG
     Route: 048
     Dates: start: 20100518, end: 20100616

REACTIONS (3)
  - CHEILITIS [None]
  - LIP DISCOLOURATION [None]
  - LIP SWELLING [None]
